FAERS Safety Report 25492099 (Version 1)
Quarter: 2025Q2

REPORT INFORMATION
  Report Type: Spontaneous
  Country: JP (occurrence: JP)
  Receive Date: 20250630
  Receipt Date: 20250630
  Transmission Date: 20250716
  Serious: Yes (Other)
  Sender: CSL BEHRING
  Company Number: JP-BEH-2025208484

PATIENT
  Age: 14 Year
  Sex: Female

DRUGS (1)
  1. HIZENTRA [Suspect]
     Active Substance: HUMAN IMMUNOGLOBULIN G
     Indication: Hypogammaglobulinaemia
     Dosage: 8 G, QW
     Route: 058

REACTIONS (4)
  - Protein-losing gastroenteropathy [Unknown]
  - General physical condition abnormal [Unknown]
  - Protein deficiency [Unknown]
  - Weight increased [Unknown]
